FAERS Safety Report 11893525 (Version 1)
Quarter: 2016Q1

REPORT INFORMATION
  Report Type: Spontaneous
  Country: US (occurrence: US)
  Receive Date: 20160106
  Receipt Date: 20160106
  Transmission Date: 20160526
  Serious: Yes (Other)
  Sender: FDA-Public Use
  Company Number: US-SA-2016SA001076

PATIENT
  Age: 44 Year
  Sex: Female

DRUGS (1)
  1. LEMTRADA [Suspect]
     Active Substance: ALEMTUZUMAB
     Route: 065
     Dates: start: 201505

REACTIONS (5)
  - White blood cells urine positive [Unknown]
  - Protein urine present [Unknown]
  - Blood urine present [Unknown]
  - Nitrituria [Unknown]
  - Leukocyturia [Unknown]

NARRATIVE: CASE EVENT DATE: 2015
